FAERS Safety Report 7126093-9 (Version None)
Quarter: 2010Q4

REPORT INFORMATION
  Report Type: 
  Country: None (occurrence: None)
  Receive Date: 20101129
  Receipt Date: 20101116
  Transmission Date: 20110411
  Serious: Yes (Hospitalization)
  Sender: FDA-Public Use
  Company Number: GXKR2010US13005

PATIENT
  Age: 74 Year
  Sex: Female

DRUGS (10)
  1. CITALOPRAM (NGX) [Interacting]
     Dosage: 40 MG/DAY
     Route: 065
  2. RISPERIDONE [Suspect]
     Indication: AGGRESSION
     Dosage: 0.125 MG/DAY
     Route: 048
  3. RISPERIDONE [Interacting]
     Dosage: 1 MG/DAY
     Route: 065
  4. MEMANTINE [Concomitant]
     Dosage: 10 MG, BID
     Route: 065
  5. MEMANTINE [Concomitant]
     Dosage: 1 MG/DAY
  6. DONEPEZIL HCL [Concomitant]
     Dosage: 10 MG/DAY
     Route: 065
  7. LEVOTHYROXINE SODIUM [Concomitant]
     Dosage: 150 UG/DAY
     Route: 065
  8. ATENOLOL [Concomitant]
     Dosage: 12.5 MG/DAY
     Route: 065
  9. ACETYLSALICYLIC ACID [Concomitant]
     Dosage: 81 MG/DAY
     Route: 065
  10. SULFAMETHOXAZOLE AND TRIMETHOPRIM [Concomitant]
     Indication: URINARY TRACT INFECTION
     Dosage: 2 DOBLE-STRENGTH TABLETS DAILY
     Route: 065

REACTIONS (11)
  - AGITATION [None]
  - DISORIENTATION [None]
  - DRY SKIN [None]
  - HYPERREFLEXIA [None]
  - MUCOSAL DRYNESS [None]
  - MYOCLONUS [None]
  - NAUSEA [None]
  - PALLOR [None]
  - SEROTONIN SYNDROME [None]
  - TACHYCARDIA [None]
  - TREMOR [None]
